FAERS Safety Report 8671978 (Version 2)
Quarter: 2013Q4

REPORT INFORMATION
  Report Type: Spontaneous
  Country: US (occurrence: US)
  Receive Date: 20120718
  Receipt Date: 20131101
  Transmission Date: 20140711
  Serious: No
  Sender: FDA-Public Use
  Company Number: US-009507513-1207USA002951

PATIENT
  Sex: Female

DRUGS (3)
  1. SAPHRIS [Suspect]
     Indication: BIPOLAR DISORDER
     Dosage: 5 MG, UNK
     Route: 060
  2. SEROQUEL [Concomitant]
  3. FLEXERIL [Concomitant]

REACTIONS (7)
  - Muscle spasms [Recovered/Resolved]
  - Pain [Recovered/Resolved]
  - Urinary incontinence [Recovered/Resolved]
  - Dysphagia [Recovered/Resolved]
  - Feeling hot [Recovered/Resolved]
  - Formication [Recovered/Resolved]
  - Depressed level of consciousness [Recovered/Resolved]
